FAERS Safety Report 5965380-4 (Version None)
Quarter: 2008Q4

REPORT INFORMATION
  Report Type: 
  Country: None (occurrence: None)
  Receive Date: 20081119
  Receipt Date: 20081028
  Transmission Date: 20090506
  Serious: Yes (Hospitalization)
  Sender: FDA-Public Use
  Company Number: 2008S1019476

PATIENT
  Age: 11 Year
  Sex: Female

DRUGS (3)
  1. AZATHIOPRINE [Suspect]
     Indication: CROHN'S DISEASE
  2. METRONIDAZOLE [Concomitant]
  3. METHYLPREDNISOLONE 16MG TAB [Concomitant]

REACTIONS (1)
  - EOSINOPHILIC PNEUMONIA [None]
